FAERS Safety Report 7133174-2 (Version None)
Quarter: 2010Q4

REPORT INFORMATION
  Report Type: 
  Country: None (occurrence: None)
  Receive Date: 20101117
  Receipt Date: 20100715
  Transmission Date: 20110411
  Serious: Yes (Other)
  Sender: FDA-Public Use
  Company Number: 2010SP033540

PATIENT
  Age: 26 Year
  Sex: Female
  Weight: 69.8539 kg

DRUGS (8)
  1. IMPLANON [Suspect]
     Indication: CONTRACEPTION
     Dosage: 1 DF
     Dates: start: 20071022, end: 20091216
  2. CARBAMAZEPINE (OTHER MFR) [Suspect]
     Indication: CONVULSION
     Dosage: 200 MG
  3. VIVELLE-DOT [Concomitant]
  4. ALBUTEROL [Concomitant]
  5. ADVAIR DISKUS 100/50 [Concomitant]
  6. CYMBALTA [Concomitant]
  7. XANAX [Concomitant]
  8. CLEOCIN [Concomitant]

REACTIONS (23)
  - ANTEPARTUM HAEMORRHAGE [None]
  - ARTHRALGIA [None]
  - CAESAREAN SECTION [None]
  - CONVULSION [None]
  - DRUG EFFECT DECREASED [None]
  - DRUG EXPOSURE DURING PREGNANCY [None]
  - DRUG INEFFECTIVE [None]
  - DRUG LEVEL DECREASED [None]
  - FUNGAL TEST POSITIVE [None]
  - GENITAL CANDIDIASIS [None]
  - HEAD INJURY [None]
  - INJURY [None]
  - MENOMETRORRHAGIA [None]
  - NAUSEA [None]
  - PREGNANCY WITH IMPLANT CONTRACEPTIVE [None]
  - ROAD TRAFFIC ACCIDENT [None]
  - RUBELLA ANTIBODY POSITIVE [None]
  - SKIN INFECTION [None]
  - VAGINAL DISCHARGE [None]
  - VAGINAL PH INCREASED [None]
  - VAGINITIS BACTERIAL [None]
  - VOMITING [None]
  - VULVOVAGINITIS [None]
